FAERS Safety Report 8374758-3 (Version None)
Quarter: 2012Q2

REPORT INFORMATION
  Report Type: 
  Country: None (occurrence: None)
  Receive Date: 20120521
  Receipt Date: 20120508
  Transmission Date: 20120825
  Serious: Yes (Other)
  Sender: FDA-Public Use
  Company Number: US-JNJFOC-20120508797

PATIENT
  Sex: Female

DRUGS (7)
  1. BUPROPION HCL [Concomitant]
     Indication: DEPRESSION
     Route: 048
  2. LISINOPRIL AND HYDROCHLOROTHIAZIDE [Concomitant]
     Indication: HYPERTENSION
     Dosage: DOSE: 10 MG /12.5 MG
     Route: 048
  3. REMICADE [Suspect]
     Indication: CROHN'S DISEASE
     Route: 042
  4. ALPRAZOLAM [Concomitant]
     Indication: SLEEP DISORDER
     Dosage: 1.5MG/TABLET/1MG/1 AND 1/2 TABLETS AT NIGHT
     Route: 048
  5. CITALOPRAM HYDROBROMIDE [Concomitant]
     Indication: DEPRESSION
     Route: 048
  6. LORTAB [Concomitant]
     Indication: BACK PAIN
     Route: 048
  7. SEROQUEL [Concomitant]
     Indication: DEPRESSION
     Route: 048

REACTIONS (2)
  - RASH [None]
  - POLYP [None]
